FAERS Safety Report 24186462 (Version 1)
Quarter: 2024Q3

REPORT INFORMATION
  Report Type: Report from Study
  Country: US (occurrence: None)
  Receive Date: 20240808
  Receipt Date: 20240808
  Transmission Date: 20241016
  Serious: Yes (Other)
  Sender: ASTRAZENECA
  Company Number: 2021A673283

PATIENT
  Age: 59 Year
  Sex: Male
  Weight: 70.3 kg

DRUGS (1)
  1. LYNPARZA [Suspect]
     Active Substance: OLAPARIB
     Indication: Breast cancer male
     Route: 048
     Dates: start: 201907

REACTIONS (2)
  - Onychoclasis [Unknown]
  - Nail disorder [Unknown]
